FAERS Safety Report 6750040-2 (Version None)
Quarter: 2010Q2

REPORT INFORMATION
  Report Type: 
  Country: None (occurrence: None)
  Receive Date: 20100601
  Receipt Date: 20100518
  Transmission Date: 20101027
  Serious: Yes (Other)
  Sender: FDA-Public Use
  Company Number: JP-PFIZER INC-2010066817

PATIENT
  Age: 75 Year
  Sex: Female
  Weight: 41 kg

DRUGS (4)
  1. CAMPTOSAR [Suspect]
     Indication: COLORECTAL CANCER
     Dosage: 120 MG/BODY (94.5 MG/M2)
     Route: 041
     Dates: start: 20091208, end: 20100413
  2. CALCIUM LEVOFOLINATE [Concomitant]
     Indication: COLORECTAL CANCER
     Dosage: 250 MG/BODY (196.9 MG/M2)
     Route: 041
     Dates: start: 20091208, end: 20100413
  3. FLUOROURACIL [Concomitant]
     Indication: COLORECTAL CANCER
     Dosage: 500 MG/BODY (393.7 MG/M2)
     Route: 040
     Dates: start: 20091208, end: 20100413
  4. FLUOROURACIL [Concomitant]
     Dosage: 3000MG/BODY/D1-2 (2362.2 MG/M2/D1-2)
     Route: 041
     Dates: start: 20091208, end: 20100413

REACTIONS (1)
  - PALMAR-PLANTAR ERYTHRODYSAESTHESIA SYNDROME [None]
